FAERS Safety Report 9455361 (Version 2)
Quarter: 2013Q3

REPORT INFORMATION
  Report Type: Spontaneous
  Country: JP (occurrence: JP)
  Receive Date: 20130813
  Receipt Date: 20130912
  Transmission Date: 20140515
  Serious: Yes (Hospitalization, Other)
  Sender: FDA-Public Use
  Company Number: PHHY2013JP071310

PATIENT
  Age: 74 Year
  Sex: Male

DRUGS (2)
  1. COMTAN [Suspect]
     Indication: PARKINSON^S DISEASE
     Dosage: UNK UKN, UNK
     Route: 048
  2. CRESTOR [Suspect]
     Dosage: UNK UKN, UNK
     Dates: end: 20130618

REACTIONS (4)
  - Fall [Unknown]
  - Local swelling [Unknown]
  - Myositis [Unknown]
  - Dehydration [Unknown]
